FAERS Safety Report 14225346 (Version 9)
Quarter: 2020Q1

REPORT INFORMATION
  Report Type: Spontaneous
  Country: US (occurrence: US)
  Receive Date: 20171127
  Receipt Date: 20200129
  Transmission Date: 20200409
  Serious: Yes (Other)
  Sender: FDA-Public Use
  Company Number: US-PFIZER INC-2017507502

PATIENT
  Age: 40 Year
  Sex: Male
  Weight: 65 kg

DRUGS (2)
  1. ELELYSO [Suspect]
     Active Substance: TALIGLUCERASE ALFA
     Indication: GAUCHER^S DISEASE TYPE I
     Dosage: 3800 IU, CYCLIC (EVERY TWO WEEKS)
     Route: 041
     Dates: start: 2010
  2. TERBINAFINE. [Concomitant]
     Active Substance: TERBINAFINE
     Indication: ANTIFUNGAL TREATMENT
     Dosage: 250 MG, 1X/DAY
     Route: 048
     Dates: start: 20171101, end: 201802

REACTIONS (14)
  - Abdominal pain upper [Not Recovered/Not Resolved]
  - Off label use [Unknown]
  - Therapeutic response unexpected [Unknown]
  - Feeling cold [Unknown]
  - Pre-existing condition improved [Unknown]
  - Burning sensation [Unknown]
  - Condition aggravated [Unknown]
  - Product use issue [Unknown]
  - Dehydration [Unknown]
  - Neuropathy peripheral [Unknown]
  - Malaise [Unknown]
  - Gaucher^s disease type I [Unknown]
  - Pyrexia [Unknown]
  - Helicobacter test positive [Not Recovered/Not Resolved]

NARRATIVE: CASE EVENT DATE: 20180131
